FAERS Safety Report 7466177-9 (Version None)
Quarter: 2011Q2

REPORT INFORMATION
  Report Type: 
  Country: None (occurrence: None)
  Receive Date: 20110509
  Receipt Date: 20110503
  Transmission Date: 20111010
  Serious: Yes (Other)
  Sender: FDA-Public Use
  Company Number: PHHY2010GB90037

PATIENT
  Age: 75 Year
  Sex: Female

DRUGS (10)
  1. DEXAMETHASONE [Suspect]
     Indication: PROPHYLAXIS
     Dosage: 1 %, QID
     Route: 061
  2. FLUCONAZOLE [Suspect]
     Indication: KERATITIS FUNGAL
     Dosage: 0.2 %, UNK
     Route: 061
  3. GENTAMICIN [Suspect]
     Dosage: 0.3 %, UNK
  4. OFLOXACIN [Suspect]
     Indication: KERATITIS FUNGAL
     Dosage: UNK UKN, UNK
  5. VORICONAZOLE [Suspect]
     Indication: KERATITIS FUNGAL
     Dosage: 400 MG, LOADING DOSE
     Route: 048
  6. VORICONAZOLE [Suspect]
     Dosage: 200 MG, BID
  7. CEFUROXIME [Suspect]
     Indication: KERATITIS FUNGAL
     Dosage: 5 %, UNK
  8. GENTAMICIN [Suspect]
     Indication: KERATITIS FUNGAL
     Dosage: 1.5 %, UNK
  9. ITRACONAZOLE [Suspect]
     Indication: KERATITIS FUNGAL
     Dosage: 100 MG, BID
     Route: 048
  10. AMPHOTERICIN B [Suspect]
     Indication: PROPHYLAXIS
     Dosage: 0.15 %, UNK

REACTIONS (8)
  - KERATITIS FUNGAL [None]
  - EYE ABSCESS [None]
  - DRUG RESISTANCE [None]
  - KERATITIS [None]
  - CORNEAL OEDEMA [None]
  - DACRYOCANALICULITIS [None]
  - TRANSPLANT REJECTION [None]
  - EYE PRURITUS [None]
